FAERS Safety Report 6033980-1 (Version None)
Quarter: 2009Q1

REPORT INFORMATION
  Report Type: 
  Country: None (occurrence: None)
  Receive Date: 20090112
  Receipt Date: 20081229
  Transmission Date: 20090719
  Serious: Yes (Hospitalization)
  Sender: FDA-Public Use
  Company Number: US-BRISTOL-MYERS SQUIBB COMPANY-14457154

PATIENT
  Sex: Female

DRUGS (1)
  1. CETUXIMAB [Suspect]
     Indication: ENDOMETRIAL CANCER
     Dosage: 2ND INFUSION ON 15DEC08.
     Route: 042
     Dates: start: 20081208

REACTIONS (1)
  - CARDIAC FAILURE CONGESTIVE [None]
